FAERS Safety Report 8834662 (Version 2)
Quarter: 2012Q4

REPORT INFORMATION
  Report Type: Spontaneous
  Country: US (occurrence: None)
  Receive Date: 20120920
  Receipt Date: 20121005
  Transmission Date: 20130627
  Serious: Yes (Death, Hospitalization, Other)
  Sender: FDA-Public Use
  Company Number: 2012PROUSA01994

PATIENT
  Age: 66 Year
  Sex: Male
  Weight: 79 kg

DRUGS (10)
  1. PROVENGE (SIPULEUCEL-T) SUSPENSION, 250ML [Suspect]
     Indication: PROSTATE CANCER METASTATIC
     Route: 042
     Dates: start: 20120607, end: 20120607
  2. SIMVASTATIN (SIMVASTATIN) [Concomitant]
  3. OMEPRAZOLE (OMEPRAZOLE) [Concomitant]
  4. LUPRON (LEUPRORELIN ACETATE) [Concomitant]
  5. ASPIRIN (ACETYLSALICYLIC ACID) [Concomitant]
  6. CALCIUM + VIT D (CALCIUM CARBONATE, VITAMIN D NOS) [Concomitant]
  7. PROZAC (FLUOXETINE HYDROCHLORIDE) [Concomitant]
  8. SENNA (SENNOSIDE A+B) [Concomitant]
  9. ACETAMINOPHEN (PARACETAMOL) [Concomitant]
  10. DIPHENHYDRAMINE CITRATE W/PARACETAMOL (DIPHENHYDRAMINE CITRATE W/PARACETAMOL) [Concomitant]

REACTIONS (5)
  - Pulmonary fibrosis [None]
  - Antinuclear antibody positive [None]
  - Interstitial lung disease [None]
  - Pulmonary hypertension [None]
  - Anaemia [None]
